FAERS Safety Report 13679194 (Version 1)
Quarter: 2017Q2

REPORT INFORMATION
  Report Type: Spontaneous
  Country: US (occurrence: US)
  Receive Date: 20170622
  Receipt Date: 20170622
  Transmission Date: 20170830
  Serious: No
  Sender: FDA-Public Use
  Company Number: US-DLSS-2017AYT000064

PATIENT

DRUGS (1)
  1. NATESTO [Suspect]
     Active Substance: TESTOSTERONE
     Indication: PRODUCT USED FOR UNKNOWN INDICATION
     Dosage: 2 DF, TID
     Route: 045

REACTIONS (5)
  - Product substitution issue [Unknown]
  - Dysphagia [Unknown]
  - Pharyngeal oedema [Unknown]
  - Drug ineffective [Unknown]
  - Libido decreased [Unknown]
